FAERS Safety Report 13836398 (Version 2)
Quarter: 2017Q3

REPORT INFORMATION
  Report Type: Report from Study
  Country: CO (occurrence: CO)
  Receive Date: 20170804
  Receipt Date: 20170823
  Transmission Date: 20171127
  Serious: Yes (Hospitalization)
  Sender: FDA-Public Use
  Company Number: CO-INCYTE CORPORATION-2017IN006284

PATIENT

DRUGS (1)
  1. JAKAVI [Suspect]
     Active Substance: RUXOLITINIB
     Indication: PRIMARY MYELOFIBROSIS
     Dosage: 5 MG, BID
     Route: 048
     Dates: start: 20170106

REACTIONS (6)
  - Haemoglobin decreased [Unknown]
  - Blood iron increased [Unknown]
  - Blood disorder [Unknown]
  - Gastritis [Unknown]
  - Muscle spasms [Recovering/Resolving]
  - Limb injury [Unknown]
